FAERS Safety Report 8540795-9 (Version None)
Quarter: 2012Q3

REPORT INFORMATION
  Report Type: 
  Country: None (occurrence: None)
  Receive Date: 20120726
  Receipt Date: 20120719
  Transmission Date: 20120928
  Serious: Yes (Disabling)
  Sender: FDA-Public Use
  Company Number: CH-BAYER-2012-070207

PATIENT
  Age: 41 Year
  Sex: Female
  Weight: 52.154 kg

DRUGS (6)
  1. LAMIVUDINE (EPIVIR HBV) [Concomitant]
  2. MIRENA [Suspect]
     Dosage: 20 MCG/24HR, CONT
     Route: 015
     Dates: start: 20120601, end: 20120710
  3. KALETRA [Concomitant]
  4. TRYPTISOL [Concomitant]
  5. MORPHINE SULFATE [Concomitant]
  6. LORAZEPAM [Concomitant]

REACTIONS (3)
  - FATIGUE [None]
  - HEADACHE [None]
  - WEIGHT INCREASED [None]
